FAERS Safety Report 5673080-3 (Version None)
Quarter: 2008Q2

REPORT INFORMATION
  Report Type: 
  Country: None (occurrence: None)
  Receive Date: 20080219
  Receipt Date: 20080104
  Transmission Date: 20081010
  Serious: No
  Sender: FDA-Public Use
  Company Number: TPA2008A00027

PATIENT
  Age: 50 Year
  Sex: Female
  Weight: 76.2043 kg

DRUGS (4)
  1. ROZEREM [Suspect]
     Indication: INSOMNIA
     Dosage: 8 MG, HS, PER ORAL
     Route: 048
     Dates: start: 20080103
  2. APAP(BUTALBITAL/CAFFEINE(ACETYLSALICYLIC ACID, CAFFEINE, BUTALBITAL) [Concomitant]
  3. GENERIC VICODIN (PARACETAMOL, HYDROCONE) [Concomitant]
  4. BUSPAR (BUSIPIRONE HYDROCHLORIDE) [Concomitant]

REACTIONS (3)
  - INITIAL INSOMNIA [None]
  - MIDDLE INSOMNIA [None]
  - MIGRAINE [None]
